FAERS Safety Report 6676747-3 (Version None)
Quarter: 2010Q2

REPORT INFORMATION
  Report Type: 
  Country: None (occurrence: None)
  Receive Date: 20100412
  Receipt Date: 20100405
  Transmission Date: 20101027
  Serious: Yes (Hospitalization)
  Sender: FDA-Public Use
  Company Number: CA-ROCHE-693463

PATIENT
  Sex: Female
  Weight: 54 kg

DRUGS (4)
  1. BEVACIZUMAB [Suspect]
     Indication: ANAPLASTIC ASTROCYTOMA
     Dosage: INDICATION: GLIOBLASTOMA MULTIFORM GRADE 4, ANAPLASTIC ASTROCYTMA
     Route: 042
     Dates: start: 20100309, end: 20100323
  2. KEPPRA [Concomitant]
  3. DECADRON [Concomitant]
  4. FRISIUM [Concomitant]

REACTIONS (2)
  - BLOOD GLUCOSE INCREASED [None]
  - BRAIN OEDEMA [None]
